FAERS Safety Report 18866721 (Version 1)
Quarter: 2021Q1

REPORT INFORMATION
  Report Type: Spontaneous
  Country: US (occurrence: US)
  Receive Date: 20210209
  Receipt Date: 20210209
  Transmission Date: 20210420
  Serious: Yes (Hospitalization)
  Sender: FDA-Public Use
  Company Number: None

PATIENT
  Age: 74 Year
  Sex: Male
  Weight: 117.93 kg

DRUGS (3)
  1. IRINOTECAN LIPOSOME (MM?398, ONIVYDE) [Suspect]
     Active Substance: IRINOTECAN HYDROCHLORIDE
     Dates: end: 20210126
  2. LEUCOVORIN CALCIUM. [Suspect]
     Active Substance: LEUCOVORIN CALCIUM
     Dates: end: 20210126
  3. 5?FLUOROURACIL (5?FU) [Suspect]
     Active Substance: FLUOROURACIL
     Dates: end: 20210128

REACTIONS (1)
  - Blood creatinine decreased [None]

NARRATIVE: CASE EVENT DATE: 20210128
